FAERS Safety Report 24955065 (Version 1)
Quarter: 2025Q1

REPORT INFORMATION
  Report Type: Spontaneous
  Country: US (occurrence: None)
  Receive Date: 20250210
  Receipt Date: 20250210
  Transmission Date: 20250408
  Serious: Yes (Hospitalization, Other)
  Sender: FDA-CTU
  Company Number: None

PATIENT
  Age: 73 Year
  Sex: Male
  Weight: 83.7 kg

DRUGS (3)
  1. ELIQUIS [Suspect]
     Active Substance: APIXABAN
     Indication: Vascular device user
     Dosage: FREQUENCY : TWICE A DAY;?
     Route: 048
  2. ELIQUIS [Suspect]
     Active Substance: APIXABAN
     Indication: Carotid artery occlusion
  3. ELIQUIS [Suspect]
     Active Substance: APIXABAN
     Indication: Cardiac failure congestive

REACTIONS (7)
  - Hepatic cancer [None]
  - Therapy interrupted [None]
  - Cerebrovascular accident [None]
  - Intracranial mass [None]
  - Therapy interrupted [None]
  - Product prescribing error [None]
  - Inappropriate schedule of product administration [None]

NARRATIVE: CASE EVENT DATE: 20241105
